FAERS Safety Report 6671298-4 (Version None)
Quarter: 2010Q2

REPORT INFORMATION
  Report Type: 
  Country: None (occurrence: None)
  Receive Date: 20100406
  Receipt Date: 20100406
  Transmission Date: 20101027
  Serious: Yes (Other)
  Sender: FDA-Public Use
  Company Number: None

PATIENT
  Age: 40 Year
  Sex: Male
  Weight: 70 kg

DRUGS (1)
  1. EQUATE ANTI-ITCH CREAM EXTRA STRENGTH NT WT 10Z PFIZER/WAL-MART [Suspect]
     Indication: PRURITUS
     Dosage: ADEQUATE BID TOP
     Route: 061
     Dates: start: 20100303, end: 20100315

REACTIONS (3)
  - BLISTER [None]
  - DRUG HYPERSENSITIVITY [None]
  - ECZEMA [None]
